FAERS Safety Report 8911848 (Version 1)
Quarter: 2012Q4

REPORT INFORMATION
  Report Type: 
  Country: US (occurrence: US)
  Receive Date: 20121116
  Receipt Date: 20121116
  Transmission Date: 20130627
  Serious: Yes (Other)
  Sender: FDA-Public Use
  Company Number: US-JNJFOC-20121105030

PATIENT
  Age: 49 None
  Sex: Female
  Weight: 55.79 kg

DRUGS (6)
  1. REMICADE [Suspect]
     Indication: CROHN^S DISEASE
     Dosage: dose ^5^
     Route: 042
     Dates: start: 2012
  2. LEVOTHYROXINE [Concomitant]
     Indication: THYROID DISORDER
     Route: 065
     Dates: start: 1997
  3. XANAX [Concomitant]
     Indication: NERVOUSNESS
     Route: 065
  4. HYDROCODONE [Concomitant]
     Route: 065
     Dates: start: 2009
  5. RESTORIL [Concomitant]
     Indication: SLEEP DISORDER
     Route: 065
  6. VITAMINS NOS [Concomitant]
     Route: 065

REACTIONS (4)
  - Thyroid function test abnormal [Not Recovered/Not Resolved]
  - Alopecia [Not Recovered/Not Resolved]
  - Crohn^s disease [Not Recovered/Not Resolved]
  - Nasopharyngitis [Not Recovered/Not Resolved]
